FAERS Safety Report 10025648 (Version 1)
Quarter: 2014Q1

REPORT INFORMATION
  Report Type: Spontaneous
  Country: None (occurrence: None)
  Receive Date: 20140314
  Receipt Date: 20140314
  Transmission Date: 20141002
  Serious: Yes (Death, Other)
  Sender: FDA-Public Use
  Company Number: ADR-2014-00401

PATIENT
  Age: 74 Year
  Sex: Female

DRUGS (4)
  1. BACLOFEN [Suspect]
     Indication: STIFF PERSON SYNDROME
  2. CYCLOPHOSPHAMIDE [Suspect]
  3. METHOTREXATE [Suspect]
  4. 5-FLUOROURACIL [Suspect]

REACTIONS (3)
  - Drug effect decreased [None]
  - Stridor [None]
  - Respiratory failure [None]
